FAERS Safety Report 10066998 (Version 3)
Quarter: 2014Q2

REPORT INFORMATION
  Report Type: Spontaneous
  Country: US (occurrence: US)
  Receive Date: 20140409
  Receipt Date: 20140507
  Transmission Date: 20141212
  Serious: Yes (Hospitalization)
  Sender: FDA-Public Use
  Company Number: US-BEH-2013037894

PATIENT
  Age: 47 Year
  Sex: Female

DRUGS (1)
  1. ZEMAIRA [Suspect]
     Route: 042

REACTIONS (3)
  - Pneumonia [Unknown]
  - Gastric bypass [Unknown]
  - Weight decreased [Unknown]
